FAERS Safety Report 9897557 (Version 4)
Quarter: 2015Q1

REPORT INFORMATION
  Report Type: Spontaneous
  Country: US (occurrence: US)
  Receive Date: 20140214
  Receipt Date: 20150219
  Transmission Date: 20150721
  Serious: Yes (Other)
  Sender: FDA-Public Use
  Company Number: US-BAYER-2014-023648

PATIENT
  Age: 35 Year
  Sex: Female
  Weight: 58.96 kg

DRUGS (3)
  1. MIRENA [Suspect]
     Active Substance: LEVONORGESTREL
     Indication: CONTRACEPTION
     Dosage: 20 MCG/24HR, CONT
     Route: 015
     Dates: start: 20070927, end: 20101216
  2. LORATADINE. [Concomitant]
     Active Substance: LORATADINE
     Dosage: 10 MG, UNK
  3. EFFEXOR [Concomitant]
     Active Substance: VENLAFAXINE HYDROCHLORIDE
     Dosage: 225 MG, UNK

REACTIONS (11)
  - Injury [None]
  - Pain [None]
  - Procedural pain [None]
  - Anxiety [None]
  - Emotional distress [None]
  - Device failure [None]
  - Medical device pain [None]
  - Embedded device [None]
  - Device issue [None]
  - Medical device discomfort [None]
  - Scar [None]

NARRATIVE: CASE EVENT DATE: 20101216
